FAERS Safety Report 13395982 (Version 1)
Quarter: 2017Q2

REPORT INFORMATION
  Report Type: Spontaneous
  Country: FR (occurrence: FR)
  Receive Date: 20170403
  Receipt Date: 20170403
  Transmission Date: 20170830
  Serious: Yes (Other)
  Sender: FDA-Public Use
  Company Number: FR-GLAXOSMITHKLINE-FR2017GSK045620

PATIENT
  Age: 66 Year
  Sex: Male

DRUGS (1)
  1. NICOPASS [Suspect]
     Active Substance: NICOTINE
     Indication: SMOKING CESSATION THERAPY
     Dosage: 5 DF, QD
     Route: 048
     Dates: start: 20170319, end: 20170322

REACTIONS (3)
  - Pharyngeal erythema [Unknown]
  - Cheilitis [Unknown]
  - Haemoptysis [Unknown]

NARRATIVE: CASE EVENT DATE: 20170321
